FAERS Safety Report 12267645 (Version 2)
Quarter: 2016Q2

REPORT INFORMATION
  Report Type: Report from Study
  Country: KR (occurrence: KR)
  Receive Date: 20160414
  Receipt Date: 20160427
  Transmission Date: 20160815
  Serious: Yes (Hospitalization)
  Sender: FDA-Public Use
  Company Number: KR-GLAXOSMITHKLINE-KR2016044719

PATIENT
  Age: 71 Year
  Sex: Female
  Weight: 62.1 kg

DRUGS (12)
  1. BLINDED ALBIGLUTIDE [Suspect]
     Active Substance: ALBIGLUTIDE
     Indication: TYPE 2 DIABETES MELLITUS
     Dosage: 30 MG, WE
     Route: 058
     Dates: start: 20151021
  2. MACPERAN [Concomitant]
     Active Substance: METOCLOPRAMIDE HYDROCHLORIDE
     Indication: PROPHYLAXIS OF NAUSEA AND VOMITING
     Route: 048
     Dates: start: 20160323, end: 20160326
  3. MOTILITONE [Concomitant]
     Active Substance: HERBALS
     Indication: PROPHYLAXIS AGAINST GASTROINTESTINAL ULCER
     Route: 048
     Dates: start: 20160323, end: 20160323
  4. SERMION [Concomitant]
     Active Substance: NICERGOLINE
     Indication: CONCUSSION
     Route: 048
     Dates: start: 20160323, end: 20160325
  5. NESINA [Concomitant]
     Active Substance: ALOGLIPTIN BENZOATE
     Indication: TYPE 2 DIABETES MELLITUS
     Dosage: 25 MG, QD
     Route: 048
     Dates: start: 20140904
  6. GLUCOPHAGE [Concomitant]
     Active Substance: METFORMIN HYDROCHLORIDE
     Indication: TYPE 2 DIABETES MELLITUS
     Dosage: 1000 MG, BID
     Route: 048
     Dates: start: 20120816
  7. BONALING-A [Concomitant]
     Active Substance: DIMENHYDRINATE
     Indication: CONCUSSION
     Route: 048
     Dates: start: 20160323, end: 20160326
  8. TRENTAL [Concomitant]
     Active Substance: PENTOXIFYLLINE
     Indication: CONCUSSION
     Route: 048
     Dates: start: 20160323, end: 20160325
  9. BLINDED PLACEBO [Suspect]
     Active Substance: INVESTIGATIONAL PRODUCT
     Indication: TYPE 2 DIABETES MELLITUS
     Dosage: 30 MG, WE
     Route: 058
     Dates: start: 20151021
  10. ALPRAM (ALPRAZOLAM) [Concomitant]
     Active Substance: ALPRAZOLAM
     Indication: PROPHYLAXIS
     Route: 048
     Dates: start: 20160323, end: 20160326
  11. NOVOMIX 50 [Concomitant]
     Indication: TYPE 2 DIABETES MELLITUS
     Dosage: 18 UNIT, QD
     Route: 058
     Dates: start: 20150909
  12. CURAN [Concomitant]
     Active Substance: RANITIDINE HYDROCHLORIDE
     Indication: PROPHYLAXIS AGAINST GASTROINTESTINAL ULCER
     Route: 048
     Dates: start: 20160323, end: 20160329

REACTIONS (1)
  - Concussion [Recovered/Resolved]

NARRATIVE: CASE EVENT DATE: 20160323
